FAERS Safety Report 9056386 (Version 1)
Quarter: 2013Q1

REPORT INFORMATION
  Report Type: Spontaneous
  Country: CA (occurrence: CA)
  Receive Date: 20130204
  Receipt Date: 20130204
  Transmission Date: 20140127
  Serious: Yes (Other)
  Sender: FDA-Public Use
  Company Number: PHHY2013CA007969

PATIENT
  Age: 62 Year
  Sex: Male

DRUGS (1)
  1. ONBREZ [Suspect]

REACTIONS (5)
  - Condition aggravated [Unknown]
  - Obstructive airways disorder [Unknown]
  - Dyspnoea [Not Recovered/Not Resolved]
  - Rash [Unknown]
  - Headache [Unknown]
